FAERS Safety Report 4831022-4 (Version None)
Quarter: 2005Q4

REPORT INFORMATION
  Report Type: 
  Country: None (occurrence: None)
  Receive Date: 20051114
  Receipt Date: 20051102
  Transmission Date: 20060501
  Serious: Yes (Hospitalization)
  Sender: FDA-Public Use
  Company Number: SP-2005-002590

PATIENT
  Age: 62 Year
  Sex: Male

DRUGS (3)
  1. ALTEIS [Suspect]
     Indication: HYPERTENSION
     Dates: start: 20050115
  2. STILNOX [Suspect]
  3. DAFALGAN [Suspect]

REACTIONS (2)
  - ACUTE FEBRILE NEUTROPHILIC DERMATOSIS [None]
  - MYALGIA [None]
